FAERS Safety Report 13380131 (Version 1)
Quarter: 2017Q1

REPORT INFORMATION
  Report Type: Spontaneous
  Country: US (occurrence: US)
  Receive Date: 20170328
  Receipt Date: 20170328
  Transmission Date: 20170429
  Serious: Yes (Hospitalization, Other)
  Sender: FDA-Public Use
  Company Number: US-ELI_LILLY_AND_COMPANY-US201608005535

PATIENT
  Age: 48 Year
  Sex: Male

DRUGS (3)
  1. CYMBALTA [Suspect]
     Active Substance: DULOXETINE HYDROCHLORIDE
     Indication: DEPRESSION
     Dosage: 60 MG, QD
     Route: 048
  2. CYMBALTA [Suspect]
     Active Substance: DULOXETINE HYDROCHLORIDE
     Dosage: 30 MG, BID
     Route: 048
     Dates: end: 20140717
  3. CYMBALTA [Suspect]
     Active Substance: DULOXETINE HYDROCHLORIDE
     Dosage: 30 MG, QD
     Route: 048

REACTIONS (24)
  - Lethargy [Unknown]
  - Drug withdrawal syndrome [Unknown]
  - Hyperhidrosis [Unknown]
  - Confusional state [Unknown]
  - Libido decreased [Unknown]
  - Vomiting [Unknown]
  - Hypomania [Unknown]
  - Vertigo [Unknown]
  - Fatigue [Unknown]
  - Diarrhoea [Unknown]
  - Dizziness [Unknown]
  - Suicidal ideation [Unknown]
  - Dysphoria [Unknown]
  - Irritability [Unknown]
  - Disturbance in attention [Unknown]
  - Suicide attempt [Unknown]
  - Agitation [Unknown]
  - Decreased appetite [Unknown]
  - Tremor [Unknown]
  - Insomnia [Unknown]
  - Affect lability [Unknown]
  - Nausea [Unknown]
  - Anxiety [Unknown]
  - Headache [Unknown]

NARRATIVE: CASE EVENT DATE: 20140829
